FAERS Safety Report 16844719 (Version 1)
Quarter: 2019Q3

REPORT INFORMATION
  Report Type: Spontaneous
  Country: BR (occurrence: BR)
  Receive Date: 20190924
  Receipt Date: 20190924
  Transmission Date: 20191005
  Serious: Yes (Other)
  Sender: FDA-Public Use
  Company Number: PHHY2019BR220238

PATIENT
  Age: 38 Year
  Sex: Male

DRUGS (1)
  1. IMATINIB. [Suspect]
     Active Substance: IMATINIB MESYLATE
     Indication: CHRONIC MYELOID LEUKAEMIA
     Dosage: 400 MG, QD
     Route: 065

REACTIONS (6)
  - Myelofibrosis [Unknown]
  - Anaemia [Unknown]
  - Reticulin increased [Unknown]
  - Platelet count decreased [Unknown]
  - Asthenia [Unknown]
  - Pallor [Unknown]
